FAERS Safety Report 19581130 (Version 2)
Quarter: 2024Q4

REPORT INFORMATION
  Report Type: Report from Study
  Country: US (occurrence: US)
  Receive Date: 20210720
  Receipt Date: 20241114
  Transmission Date: 20250114
  Serious: No
  Sender: ROCHE
  Company Number: US-ROCHE-2869712

PATIENT
  Age: 81 Year
  Sex: Female

DRUGS (7)
  1. OCREVUS [Suspect]
     Active Substance: OCRELIZUMAB
     Indication: Primary progressive multiple sclerosis
     Dosage: THEN EVERY 6 MONTHS?DATE OF TREATMENT:  01/OCT/2018
     Route: 042
     Dates: start: 20180914
  2. OCREVUS [Suspect]
     Active Substance: OCRELIZUMAB
     Indication: Relapsing multiple sclerosis
     Dosage: THEN EVERY 6 MONTHS?DATE OF TREATMENT:  01/OCT/2019, 01/MAY/2020
     Route: 042
     Dates: start: 20190401
  3. LEVOTHYROXINE [Concomitant]
     Active Substance: LEVOTHYROXINE
     Dosage: ONE AND A HALF OF 25MG PILL
  4. ALPRAZOLAM [Concomitant]
     Active Substance: ALPRAZOLAM
  5. DICLOFENAC TM [Concomitant]
  6. FUROSEMIDE [Concomitant]
     Active Substance: FUROSEMIDE
     Route: 048
  7. ACETAMINOPHEN [Concomitant]
     Active Substance: ACETAMINOPHEN

REACTIONS (10)
  - Peroneal nerve palsy [Not Recovered/Not Resolved]
  - Asthenia [Not Recovered/Not Resolved]
  - Therapeutic response shortened [Unknown]
  - Vulvovaginal dryness [Unknown]
  - Gait disturbance [Not Recovered/Not Resolved]
  - Influenza [Unknown]
  - Fall [Unknown]
  - COVID-19 [Unknown]
  - Weight decreased [Not Recovered/Not Resolved]
  - Fatigue [Unknown]

NARRATIVE: CASE EVENT DATE: 20201101
